FAERS Safety Report 5936313-1 (Version None)
Quarter: 2008Q4

REPORT INFORMATION
  Report Type: 
  Country: None (occurrence: None)
  Receive Date: 20081030
  Receipt Date: 20081013
  Transmission Date: 20090506
  Serious: Yes (Other)
  Sender: FDA-Public Use
  Company Number: US-BAYER-200814090BCC

PATIENT
  Age: 16 Year
  Sex: Male
  Weight: 59 kg

DRUGS (1)
  1. ALKA-SELTZER PLUS EFFERVESCENT SPARKLING ORIGINAL COLD [Suspect]
     Indication: NASOPHARYNGITIS
     Dates: start: 20081001

REACTIONS (1)
  - EPISTAXIS [None]
